FAERS Safety Report 24165746 (Version 1)
Quarter: 2024Q3

REPORT INFORMATION
  Report Type: Spontaneous
  Country: US (occurrence: US)
  Receive Date: 20240802
  Receipt Date: 20240802
  Transmission Date: 20241017
  Serious: Yes (Death, Hospitalization, Other)
  Sender: DR REDDYS
  Company Number: US-DRL-USA-LIT/USA/24/0011112

PATIENT
  Age: 68 Year
  Sex: Female

DRUGS (3)
  1. BORTEZOMIB [Suspect]
     Active Substance: BORTEZOMIB
     Indication: Acquired amegakaryocytic thrombocytopenia
  2. CYCLOSPORINE [Suspect]
     Active Substance: CYCLOSPORINE
  3. equine ATG [Concomitant]
     Indication: Acquired amegakaryocytic thrombocytopenia

REACTIONS (2)
  - Subdural haematoma [Fatal]
  - Drug ineffective for unapproved indication [Fatal]
